FAERS Safety Report 14251867 (Version 5)
Quarter: 2018Q2

REPORT INFORMATION
  Report Type: Spontaneous
  Country: US (occurrence: US)
  Receive Date: 20171205
  Receipt Date: 20180402
  Transmission Date: 20180711
  Serious: Yes (Death, Congenital Anomaly, Other)
  Sender: FDA-Public Use
  Company Number: PHEH2017US039040

PATIENT
  Sex: Male

DRUGS (1)
  1. ZOFRAN [Suspect]
     Active Substance: ONDANSETRON HYDROCHLORIDE
     Indication: FOETAL EXPOSURE DURING PREGNANCY
     Dosage: MOTHER DOSE: 08 MG, BID
     Route: 064

REACTIONS (21)
  - Neonatal hypoxia [Unknown]
  - Nephrocalcinosis [Unknown]
  - Cyst [Unknown]
  - Heart disease congenital [Unknown]
  - Intraventricular haemorrhage neonatal [Unknown]
  - Flatulence [Unknown]
  - Pulmonary oedema [Unknown]
  - Pleural effusion [Unknown]
  - Brain oedema [Unknown]
  - Cardiomegaly [Unknown]
  - Patent ductus arteriosus [Unknown]
  - Hypoplastic left heart syndrome [Fatal]
  - Ventricular fibrillation [Unknown]
  - Congenital choroid plexus cyst [Unknown]
  - Neonatal respiratory distress [Unknown]
  - Anuria [Unknown]
  - Foetal exposure during pregnancy [Unknown]
  - Atrioventricular block complete [Unknown]
  - Low cardiac output syndrome [Unknown]
  - Pericardial effusion [Unknown]
  - Injury [Unknown]
